FAERS Safety Report 17103868 (Version 1)
Quarter: 2019Q4

REPORT INFORMATION
  Report Type: Other
  Country: GB (occurrence: GB)
  Receive Date: 20191203
  Receipt Date: 20191203
  Transmission Date: 20200122
  Serious: Yes (Congenital Anomaly, Other)
  Sender: FDA-Public Use
  Company Number: GB-EMCURE PHARMACEUTICALS LTD-2007-EPL-0003

PATIENT
  Sex: Male
  Weight: 3.5 kg

DRUGS (1)
  1. SERTRALINE HYDROCHLORIDE. [Suspect]
     Active Substance: SERTRALINE HYDROCHLORIDE
     Indication: PRODUCT USED FOR UNKNOWN INDICATION
     Dosage: 50 MILLIGRAM, QD, THROUGHOUT PREGNANCY
     Route: 064

REACTIONS (2)
  - Limb malformation [Not Recovered/Not Resolved]
  - Foetal exposure during pregnancy [Unknown]
